FAERS Safety Report 10224527 (Version 1)
Quarter: 2014Q2

REPORT INFORMATION
  Report Type: Spontaneous
  Country: US (occurrence: US)
  Receive Date: 20140609
  Receipt Date: 20140609
  Transmission Date: 20141212
  Serious: No
  Sender: FDA-Public Use
  Company Number: US-BAYER-2014-079731

PATIENT
  Age: 52 Year
  Sex: Female
  Weight: 77.1 kg

DRUGS (7)
  1. ALEVE TABLET [Suspect]
     Indication: SCIATICA
     Dosage: 2 DF, BID
     Route: 048
  2. ALEVE TABLET [Suspect]
     Indication: ARTHRITIS
  3. ALEVE CAPLET [Suspect]
     Indication: SCIATICA
     Dosage: 2 DF, BID
     Route: 048
  4. ALEVE CAPLET [Suspect]
     Indication: ARTHRITIS
  5. TYLENOL [PARACETAMOL] [Concomitant]
  6. CENTRUM [Concomitant]
  7. NATUREMADE CALCIUM + MAGNESIUM WITH ZINC [Concomitant]

REACTIONS (3)
  - Incorrect drug administration duration [None]
  - Off label use [None]
  - Extra dose administered [None]
